FAERS Safety Report 17156803 (Version 1)
Quarter: 2019Q4

REPORT INFORMATION
  Report Type: Spontaneous
  Country: DE (occurrence: DE)
  Receive Date: 20191216
  Receipt Date: 20191216
  Transmission Date: 20200122
  Serious: Yes (Other)
  Sender: FDA-Public Use
  Company Number: DE-TEVA-801378GER

PATIENT
  Sex: Female
  Weight: 90 kg

DRUGS (5)
  1. LEVEMIR [Concomitant]
     Active Substance: INSULIN DETEMIR
     Indication: GESTATIONAL DIABETES
     Dosage: 10 IU (INTERNATIONAL UNIT) DAILY;
     Route: 058
  2. FOLSAEURE [Concomitant]
     Active Substance: FOLIC ACID
     Indication: PROPHYLAXIS OF NEURAL TUBE DEFECT
     Dosage: 0. - 37.4. GESTATIONAL WEEK
     Route: 048
     Dates: start: 20160830, end: 20170520
  3. CLOZAPINE. [Suspect]
     Active Substance: CLOZAPINE
     Indication: PSYCHOTIC DISORDER
     Dosage: 200 [MG/D ], 0. - 37.4. GESTATIONAL WEEK
     Route: 048
     Dates: start: 20160830, end: 20170520
  4. HUMALOG [Concomitant]
     Active Substance: INSULIN LISPRO
     Indication: GESTATIONAL DIABETES
     Dosage: DOSAGE DEPENDS ON BLOOD GLUCOSE LEVEL, 3 X/D; 22. - 37.4. GESTATIONAL WEEK
     Route: 058
  5. SERTRALINE [Concomitant]
     Active Substance: SERTRALINE HYDROCHLORIDE
     Indication: PSYCHOTIC DISORDER
     Dosage: 100 MILLIGRAM DAILY;
     Route: 048
     Dates: start: 20160830, end: 20170520

REACTIONS (2)
  - Maternal exposure during pregnancy [Unknown]
  - Gestational diabetes [Recovered/Resolved]
